FAERS Safety Report 4781428-7 (Version None)
Quarter: 2005Q3

REPORT INFORMATION
  Report Type: 
  Country: None (occurrence: None)
  Receive Date: 20050927
  Receipt Date: 20050916
  Transmission Date: 20060218
  Serious: Yes (Hospitalization)
  Sender: FDA-Public Use
  Company Number: ST-2005-008577

PATIENT
  Age: 84 Year
  Sex: Female
  Weight: 64 kg

DRUGS (10)
  1. OLMETEC [Suspect]
     Indication: HYPERTENSION
     Dosage: 20 MG, QD, PO
     Route: 048
     Dates: start: 20050606, end: 20050819
  2. FLUITRAN [Suspect]
     Dosage: 2 MG, QD, PO
     Route: 048
     Dates: start: 20050704, end: 20050819
  3. ATELEC [Concomitant]
  4. ACTOS [Concomitant]
  5. AMARYL [Concomitant]
  6. PRAVASTATIN [Concomitant]
  7. MELBIN [Concomitant]
  8. GASMOTIN [Concomitant]
  9. EURODIN [Concomitant]
  10. FAMOTIDINE [Concomitant]

REACTIONS (1)
  - HEPATIC FUNCTION ABNORMAL [None]
